FAERS Safety Report 9267075 (Version 2)
Quarter: 2013Q2

REPORT INFORMATION
  Report Type: Spontaneous
  Country: IT (occurrence: IT)
  Receive Date: 20130502
  Receipt Date: 20130509
  Transmission Date: 20140414
  Serious: Yes (Hospitalization)
  Sender: FDA-Public Use
  Company Number: IT-JNJFOC-20130414127

PATIENT
  Age: 74 Year
  Sex: Male

DRUGS (11)
  1. ABCIXIMAB [Suspect]
     Indication: ACUTE MYOCARDIAL INFARCTION
     Route: 065
     Dates: start: 20130411
  2. PLAVIX [Suspect]
     Indication: ACUTE MYOCARDIAL INFARCTION
     Route: 065
     Dates: start: 20130411, end: 20130420
  3. HEPARIN [Suspect]
     Indication: ACUTE MYOCARDIAL INFARCTION
     Dosage: 4000 UNITS
     Route: 042
     Dates: start: 20130411
  4. EFFIENT [Suspect]
     Indication: ACUTE PULMONARY OEDEMA
     Route: 065
     Dates: start: 20130411, end: 20130420
  5. BISOPROLOL [Suspect]
     Indication: ACUTE PULMONARY OEDEMA
     Route: 065
  6. AMIODARONE [Suspect]
     Indication: ACUTE PULMONARY OEDEMA
     Route: 065
  7. RAMIPRIL [Suspect]
     Indication: ACUTE PULMONARY OEDEMA
     Route: 065
  8. FUROSEMIDE [Suspect]
     Indication: ACUTE PULMONARY OEDEMA
     Route: 065
  9. ATORVASTATIN [Suspect]
     Indication: ACUTE PULMONARY OEDEMA
     Route: 065
  10. CARDIOASPIRIN [Concomitant]
     Indication: ACUTE PULMONARY OEDEMA
     Route: 065
     Dates: start: 20130411, end: 20130420
  11. CARDIOASPIRIN [Concomitant]
     Indication: ACUTE MYOCARDIAL INFARCTION
     Route: 065
     Dates: start: 20130411, end: 20130420

REACTIONS (2)
  - Purpura [Recovering/Resolving]
  - Thrombocytopenia [Unknown]
